FAERS Safety Report 9787449 (Version 1)
Quarter: 2013Q4

REPORT INFORMATION
  Report Type: Spontaneous
  Country: US (occurrence: US)
  Receive Date: 20131230
  Receipt Date: 20131230
  Transmission Date: 20140711
  Serious: No
  Sender: FDA-Public Use
  Company Number: US-BIOGENIDEC-2013BI123710

PATIENT
  Sex: Female

DRUGS (7)
  1. AVONEX [Suspect]
     Indication: MULTIPLE SCLEROSIS
     Route: 030
     Dates: start: 20110526
  2. ADVIL [Concomitant]
  3. AMLODIPINE BESYLATE [Concomitant]
  4. BALSALAZIDE DISODIUM [Concomitant]
  5. CIPROFLOXACIN HCL [Concomitant]
  6. VITAMIN A [Concomitant]
  7. VITAMIN D [Concomitant]

REACTIONS (4)
  - Adverse event [Unknown]
  - Chills [Unknown]
  - Headache [Unknown]
  - Palpitations [Unknown]
